FAERS Safety Report 23772302 (Version 1)
Quarter: 2024Q2

REPORT INFORMATION
  Report Type: Spontaneous
  Country: US (occurrence: US)
  Receive Date: 20240423
  Receipt Date: 20240423
  Transmission Date: 20240716
  Serious: Yes (Other)
  Sender: FDA-Public Use
  Company Number: US-GLAXOSMITHKLINE-US2024048764

PATIENT

DRUGS (1)
  1. NUCALA [Suspect]
     Active Substance: MEPOLIZUMAB
     Indication: Pulmonary vasculitis
     Dosage: 100 MG/ML, Q4W
     Dates: end: 202402

REACTIONS (4)
  - Pertussis [Unknown]
  - COVID-19 [Unknown]
  - Product dose omission issue [Unknown]
  - Product use in unapproved indication [Unknown]
